FAERS Safety Report 6425758-1 (Version None)
Quarter: 2009Q4

REPORT INFORMATION
  Report Type: 
  Country: None (occurrence: None)
  Receive Date: 20091103
  Receipt Date: 20091022
  Transmission Date: 20100525
  Serious: Yes (Other)
  Sender: FDA-Public Use
  Company Number: ES-GENENTECH-292939

PATIENT
  Age: 63 Year
  Sex: Female

DRUGS (1)
  1. HERCEPTIN [Suspect]
     Indication: BREAST CANCER
     Dosage: 360 MG, Q3W
     Route: 042
     Dates: start: 20050914, end: 20090820

REACTIONS (1)
  - AUTOIMMUNE THROMBOCYTOPENIA [None]
